FAERS Safety Report 8974183 (Version 1)
Quarter: 2012Q4

REPORT INFORMATION
  Report Type: Spontaneous
  Country: US (occurrence: None)
  Receive Date: 20121217
  Receipt Date: 20121217
  Transmission Date: 20130627
  Serious: Yes (Other)
  Sender: FDA-Public Use
  Company Number: None

PATIENT
  Age: 50 Year
  Sex: Female
  Weight: 90.72 kg

DRUGS (10)
  1. EVISTA [Suspect]
     Indication: LOBULAR BREAST CARCINOMA (IN SITU)
     Route: 048
     Dates: start: 20121119, end: 20121129
  2. METFORMIN [Concomitant]
  3. BISOPROLOL [Concomitant]
  4. CYMBALTA [Concomitant]
  5. LITHIUM [Concomitant]
  6. VESICARE [Concomitant]
  7. NUVIGIL [Concomitant]
  8. NASONEX [Concomitant]
  9. VITAMIN D [Concomitant]
  10. MULTIVITAMIN [Concomitant]

REACTIONS (5)
  - Insomnia [None]
  - Depression suicidal [None]
  - Feeling jittery [None]
  - Feeling abnormal [None]
  - Impaired work ability [None]
